FAERS Safety Report 24126125 (Version 1)
Quarter: 2024Q3

REPORT INFORMATION
  Report Type: Spontaneous
  Country: CN (occurrence: CN)
  Receive Date: 20240723
  Receipt Date: 20240723
  Transmission Date: 20241017
  Serious: Yes (Other)
  Sender: GLAND PHARMA
  Company Number: CN-GLANDPHARMA-CN-2024GLNLIT00502

PATIENT
  Age: 49 Year
  Sex: Male

DRUGS (2)
  1. AMIODARONE HYDROCHLORIDE [Suspect]
     Active Substance: AMIODARONE HYDROCHLORIDE
     Indication: Atrial tachycardia
     Route: 065
  2. WARFARIN [Suspect]
     Active Substance: WARFARIN
     Indication: Anticoagulant therapy
     Route: 065

REACTIONS (3)
  - Anticoagulant-related nephropathy [Recovered/Resolved]
  - Drug interaction [Unknown]
  - Product use in unapproved indication [Unknown]
